FAERS Safety Report 10157483 (Version 2)
Quarter: 2014Q2

REPORT INFORMATION
  Report Type: Spontaneous
  Country: US (occurrence: US)
  Receive Date: 20140507
  Receipt Date: 20140610
  Transmission Date: 20141212
  Serious: Yes (Other)
  Sender: FDA-Public Use
  Company Number: US-AMGEN-USASP2014031419

PATIENT
  Age: 63 Year
  Sex: Female

DRUGS (11)
  1. PROLIA [Suspect]
     Indication: OSTEOPOROSIS POSTMENOPAUSAL
     Dosage: 60 MG, Q6MO
     Route: 065
     Dates: start: 200906
  2. TRAZODONE [Concomitant]
     Dosage: 150 MG, QD TWO TABLETS
  3. LIDODERM [Concomitant]
     Dosage: 5 MG, BID
  4. VENTOLIN                           /00139501/ [Concomitant]
     Indication: ASTHMA
  5. VENTOLIN                           /00139501/ [Concomitant]
     Indication: HYPERSENSITIVITY
  6. OMEPRAZOLE [Concomitant]
     Dosage: 80 MG, QD
  7. B COMPLEX                          /00212701/ [Concomitant]
  8. VITAMIN D                          /00107901/ [Concomitant]
     Dosage: UNK UNK, QD
  9. FLAX OIL                           /01649403/ [Concomitant]
  10. BENADRYL                           /00000402/ [Concomitant]
     Indication: HYPERSENSITIVITY
  11. MUCINEX [Concomitant]

REACTIONS (18)
  - Clavicle fracture [Unknown]
  - Femur fracture [Unknown]
  - Wrist fracture [Unknown]
  - Chondrolysis [Unknown]
  - Nephrolithiasis [Unknown]
  - Convulsion [Unknown]
  - Spinal fusion surgery [Unknown]
  - Fall [Unknown]
  - Pain [Unknown]
  - Post procedural complication [Unknown]
  - Dysstasia [Unknown]
  - Mobility decreased [Unknown]
  - Skeletal injury [Unknown]
  - Muscle spasms [Unknown]
  - Migraine [Unknown]
  - Pyrexia [Unknown]
  - Diarrhoea [Unknown]
  - Constipation [Unknown]
